FAERS Safety Report 25812511 (Version 1)
Quarter: 2025Q3

REPORT INFORMATION
  Report Type: Spontaneous
  Country: CN (occurrence: CN)
  Receive Date: 20250917
  Receipt Date: 20250917
  Transmission Date: 20251020
  Serious: Yes (Other)
  Sender: PFIZER
  Company Number: CN-MLMSERVICE-20250905-PI633307-00255-1

PATIENT
  Age: 55 Year
  Sex: Female

DRUGS (2)
  1. PACLITAXEL [Interacting]
     Active Substance: PACLITAXEL
     Indication: Breast cancer female
  2. DOXORUBICIN [Interacting]
     Active Substance: DOXORUBICIN
     Indication: Breast cancer female

REACTIONS (2)
  - Cystoid macular oedema [Not Recovered/Not Resolved]
  - Drug interaction [Unknown]
